FAERS Safety Report 7918519-5 (Version None)
Quarter: 2011Q4

REPORT INFORMATION
  Report Type: 
  Country: None (occurrence: None)
  Receive Date: 20111116
  Receipt Date: 20111114
  Transmission Date: 20120403
  Serious: Yes (Other)
  Sender: FDA-Public Use
  Company Number: US-PFIZER INC-2011221704

PATIENT
  Sex: Male

DRUGS (4)
  1. XANAX [Suspect]
     Dosage: ONE OR TWO TABLETS, DAILY (AT NIGHT)
     Route: 048
  2. XANAX [Suspect]
     Dosage: 1 MG, 2 PER NIGHT
     Route: 048
  3. XANAX [Suspect]
     Indication: INSOMNIA
     Dosage: 1 MG, 4 PER NIGHT
     Route: 048
  4. XANAX [Suspect]
     Dosage: THREE TABLETS, DAILY (AT NIGHT)
     Route: 048

REACTIONS (5)
  - INSOMNIA [None]
  - DISORIENTATION [None]
  - SOMNOLENCE [None]
  - LYME DISEASE [None]
  - BALANCE DISORDER [None]
